FAERS Safety Report 15825679 (Version 1)
Quarter: 2019Q1

REPORT INFORMATION
  Report Type: Spontaneous
  Country: IT (occurrence: IT)
  Receive Date: 20190115
  Receipt Date: 20190115
  Transmission Date: 20190417
  Serious: Yes (Hospitalization)
  Sender: FDA-Public Use
  Company Number: IT-SA-2019SA003894

PATIENT
  Age: 85 Year
  Sex: Female

DRUGS (10)
  1. LANTUS [Suspect]
     Active Substance: INSULIN GLARGINE
     Indication: DIABETES MELLITUS
     Dosage: UNK
  2. CARDURA [Concomitant]
     Active Substance: DOXAZOSIN MESYLATE
     Dosage: UNK UNK, UNK
  3. TALOFEN [Concomitant]
     Active Substance: PROMAZINE HYDROCHLORIDE
     Dosage: UNK UNK, UNK
  4. MOVICOL [Concomitant]
     Active Substance: POLYETHYLENE GLYCOL 3350\POTASSIUM CHLORIDE\SODIUM BICARBONATE\SODIUM CHLORIDE
     Dosage: UNK UNK, UNK
  5. COTAREG [Concomitant]
     Active Substance: HYDROCHLOROTHIAZIDE\VALSARTAN
     Dosage: UNK UNK, UNK
  6. INSULIN LISPRO [Suspect]
     Active Substance: INSULIN LISPRO
     Indication: DIABETES MELLITUS
     Dosage: UNK
  7. LACIREX [Concomitant]
     Active Substance: LACIDIPINE
     Dosage: UNK UNK, UNK
  8. NORMIX [Concomitant]
     Active Substance: RIFAXIMIN
     Dosage: UNK UNK, UNK
  9. TARDYFER [Concomitant]
     Active Substance: FERROUS SULFATE
     Dosage: UNK UNK, UNK
  10. CARTEABAK [Concomitant]
     Dosage: UNK UNK, UNK

REACTIONS (2)
  - Bradycardia [Recovered/Resolved]
  - Hypoglycaemia [Recovered/Resolved]

NARRATIVE: CASE EVENT DATE: 20181006
